FAERS Safety Report 24388031 (Version 2)
Quarter: 2024Q4

REPORT INFORMATION
  Report Type: Spontaneous
  Country: IN (occurrence: US)
  Receive Date: 20241002
  Receipt Date: 20241010
  Transmission Date: 20250115
  Serious: Yes (Hospitalization)
  Sender: PFIZER
  Company Number: IN-PFIZER INC-202400267798

PATIENT
  Age: 59 Year
  Sex: Male
  Weight: 236.6 kg

DRUGS (5)
  1. METHOTREXATE SODIUM [Suspect]
     Active Substance: METHOTREXATE SODIUM
     Indication: Central nervous system lymphoma
     Dosage: 8 MG/M2 Q4HR
     Route: 042
     Dates: start: 20240509, end: 20240509
  2. TIRABRUTINIB [Concomitant]
     Active Substance: TIRABRUTINIB
     Indication: Central nervous system lymphoma
     Dosage: 480 MG, DAILY
     Dates: start: 20240509, end: 20240511
  3. TIRABRUTINIB [Concomitant]
     Active Substance: TIRABRUTINIB
     Dosage: UNK
     Dates: end: 20240513
  4. TIRABRUTINIB [Concomitant]
     Active Substance: TIRABRUTINIB
     Dosage: UNK
     Dates: start: 20240515
  5. RITUXIMAB [Concomitant]
     Active Substance: RITUXIMAB
     Indication: Central nervous system lymphoma
     Dosage: 375 MG/M2, WEEKLY
     Route: 042
     Dates: start: 20240510

REACTIONS (1)
  - Acute kidney injury [Recovered/Resolved]

NARRATIVE: CASE EVENT DATE: 20240511
